FAERS Safety Report 19635909 (Version 1)
Quarter: 2021Q3

REPORT INFORMATION
  Report Type: Spontaneous
  Country: US (occurrence: US)
  Receive Date: 20210730
  Receipt Date: 20210730
  Transmission Date: 20211014
  Serious: Yes (Life-Threatening, Hospitalization, Other)
  Sender: FDA-Public Use
  Company Number: US-PFIZER INC-202100930430

PATIENT
  Age: 40 Year
  Sex: Female

DRUGS (2)
  1. VINCRISTINE [Concomitant]
     Active Substance: VINCRISTINE
     Indication: ACUTE LYMPHOCYTIC LEUKAEMIA
     Dosage: 2 MG (DAY 1)
     Route: 042
  2. METHOTREXATE SODIUM. [Suspect]
     Active Substance: METHOTREXATE SODIUM
     Indication: ACUTE LYMPHOCYTIC LEUKAEMIA
     Dosage: 250 MG (100 MG/M2)
     Route: 042

REACTIONS (16)
  - Acute kidney injury [Unknown]
  - Pancytopenia [Recovered/Resolved]
  - Face oedema [Unknown]
  - Drug-induced liver injury [Recovered/Resolved]
  - Intertrigo [Unknown]
  - Neutropenia [Unknown]
  - Rash [Unknown]
  - Hepatitis acute [Unknown]
  - Skin toxicity [Unknown]
  - Mucosal inflammation [Unknown]
  - Toxicity to various agents [Recovering/Resolving]
  - Skin exfoliation [Unknown]
  - Leukopenia [Unknown]
  - Anaemia [Unknown]
  - Myelosuppression [Unknown]
  - Stomatitis [Recovered/Resolved]
